FAERS Safety Report 10381642 (Version 1)
Quarter: 2014Q1

REPORT INFORMATION
  Report Type: Spontaneous
  Country: US (occurrence: None)
  Receive Date: 20140306
  Receipt Date: 20140306
  Transmission Date: 20141002
  Serious: Yes (Hospitalization)
  Sender: FDA-Public Use
  Company Number: 163-21880-13040812

PATIENT
  Age: 63 Year
  Sex: Male
  Weight: 112.95 kg

DRUGS (8)
  1. REVLIMID [Suspect]
     Indication: PLASMA CELL MYELOMA
     Route: 048
     Dates: start: 201012
  2. ACYCLOVIR [Concomitant]
  3. DIGOXIN [Concomitant]
  4. DILTIAZEM [Concomitant]
  5. LASIX (FUROSEMIDE) [Concomitant]
  6. RAMIPRIL [Concomitant]
  7. XARELTO (RIVAROXABAN) [Concomitant]
  8. DEXAMETHASONE [Concomitant]

REACTIONS (2)
  - Influenza [None]
  - Pneumonia [None]
